FAERS Safety Report 5624847-9 (Version None)
Quarter: 2008Q1

REPORT INFORMATION
  Report Type: 
  Country: None (occurrence: None)
  Receive Date: 20080213
  Receipt Date: 20080204
  Transmission Date: 20080703
  Serious: Yes (Other)
  Sender: FDA-Public Use
  Company Number: US-JNJFOC-20080202191

PATIENT
  Sex: Female
  Weight: 81.65 kg

DRUGS (7)
  1. MOTRIN [Suspect]
     Route: 048
  2. MOTRIN [Suspect]
     Indication: FIBROMYALGIA
     Route: 048
  3. IMODIUM [Concomitant]
  4. SYNTHROID [Concomitant]
     Indication: THYROID DISORDER
  5. TOPROL [Concomitant]
     Indication: HYPERTENSION
  6. LORAZEPAM [Concomitant]
  7. VITAMIN E [Concomitant]

REACTIONS (3)
  - ARTHRALGIA [None]
  - GAIT DISTURBANCE [None]
  - WEIGHT DECREASED [None]
